FAERS Safety Report 9340073 (Version 1)
Quarter: 2013Q2

REPORT INFORMATION
  Report Type: Spontaneous
  Country: GB (occurrence: None)
  Receive Date: 20130605
  Receipt Date: 20130605
  Transmission Date: 20140414
  Serious: Yes (Hospitalization)
  Sender: FDA-Public Use
  Company Number: 1728897

PATIENT
  Age: 55 Year
  Sex: Female
  Weight: 69 kg

DRUGS (10)
  1. (VINCRISTINE SULFATE) [Suspect]
     Indication: B-CELL LYMPHOMA
     Route: 042
     Dates: start: 20130123
  2. MONOCLONAL [Suspect]
     Indication: NON-HODGKIN^S LYMPHOMA UNSPECIFIED HISTOLOGY INDOLENT
     Route: 042
     Dates: start: 20130123
  3. CYCLOPHOSPHAMIDE [Suspect]
     Indication: B-CELL LYMPHOMA
     Route: 042
     Dates: start: 20130123
  4. PREDNISOLONE [Suspect]
     Indication: B-CELL LYMPHOMA
     Route: 042
     Dates: start: 20130123
  5. (MORPHINE SULFATE) [Concomitant]
  6. (MACROGOL) [Concomitant]
  7. (SENNA/00142201/) [Concomitant]
  8. (PREGABALIN) [Concomitant]
  9. (CHLORPHENIRAMINE MALEATE) [Concomitant]
  10. (PARACETAMOL) [Concomitant]

REACTIONS (1)
  - Pulmonary embolism [None]
